FAERS Safety Report 4907086-6 (Version None)
Quarter: 2006Q1

REPORT INFORMATION
  Report Type: 
  Country: None (occurrence: None)
  Receive Date: 20060206
  Receipt Date: 20060124
  Transmission Date: 20060701
  Serious: Yes (Disabling, Other)
  Sender: FDA-Public Use
  Company Number: 2006003997

PATIENT
  Age: 6 Year
  Sex: Female
  Weight: 14 kg

DRUGS (4)
  1. GENOTROPIN [Suspect]
     Indication: BODY HEIGHT BELOW NORMAL
     Dosage: 2.3 MG/WEEK (DAILY INTERVAL:  6 TIMES A WEEK), SUBCUTANEOUS
     Route: 058
     Dates: start: 20050813, end: 20051126
  2. GENOTROPIN [Suspect]
     Indication: GROWTH HORMONE DEFICIENCY
     Dosage: 2.3 MG/WEEK (DAILY INTERVAL:  6 TIMES A WEEK), SUBCUTANEOUS
     Route: 058
     Dates: start: 20050813, end: 20051126
  3. GENOTROPIN [Suspect]
     Indication: BODY HEIGHT BELOW NORMAL
     Dosage: 2.3 MG/WEEK (DAILY INTERVAL:  6 TIMES A WEEK), SUBCUTANEOUS
     Route: 058
     Dates: start: 20060113
  4. GENOTROPIN [Suspect]
     Indication: GROWTH HORMONE DEFICIENCY
     Dosage: 2.3 MG/WEEK (DAILY INTERVAL:  6 TIMES A WEEK), SUBCUTANEOUS
     Route: 058
     Dates: start: 20060113

REACTIONS (3)
  - ARTHROPATHY [None]
  - FEMUR FRACTURE [None]
  - INTERMITTENT CLAUDICATION [None]
